FAERS Safety Report 21742148 (Version 1)
Quarter: 2022Q4

REPORT INFORMATION
  Report Type: Spontaneous
  Country: GR (occurrence: GR)
  Receive Date: 20221216
  Receipt Date: 20221216
  Transmission Date: 20230113
  Serious: Yes (Other)
  Sender: FDA-Public Use
  Company Number: GR-MYLANLABS-2022M1134311

PATIENT
  Age: 76 Year
  Sex: Male

DRUGS (2)
  1. TRULICITY [Suspect]
     Active Substance: DULAGLUTIDE
     Indication: Hyperglycaemia
     Dosage: 1.5 MG, WEEKLY (1/W)
     Route: 058
  2. MESTINON [Suspect]
     Active Substance: PYRIDOSTIGMINE BROMIDE
     Indication: Myasthenia gravis
     Dosage: 600 MG, TID
     Route: 048
     Dates: start: 202209

REACTIONS (2)
  - Haematuria [Recovered/Resolved]
  - Urine abnormality [Recovered/Resolved]
